FAERS Safety Report 13294286 (Version 1)
Quarter: 2017Q1

REPORT INFORMATION
  Report Type: Spontaneous
  Country: PT (occurrence: PT)
  Receive Date: 20170303
  Receipt Date: 20170303
  Transmission Date: 20170428
  Serious: Yes (Other)
  Sender: FDA-Public Use
  Company Number: PT-MYLANLABS-2017M1009222

PATIENT

DRUGS (8)
  1. DUMYROX [Suspect]
     Active Substance: FLUVOXAMINE
     Indication: DEPRESSION
     Dosage: 1/2 COMPRIMIDO AO LANCHE (50MG) E 1 COMP. E MEIO AO JANTAR (150MG)
     Route: 048
     Dates: start: 20160725, end: 20161014
  2. QUETIAPINE. [Suspect]
     Active Substance: QUETIAPINE
     Indication: DEPRESSION
     Dosage: 25 MG AO DEITAR
     Route: 048
     Dates: start: 20161004, end: 20161014
  3. ARCALION /01246001/ [Suspect]
     Active Substance: SULBUTIAMINE
     Indication: ASTHENIA
     Route: 048
     Dates: start: 20161004
  4. NEBILET [Concomitant]
     Active Substance: NEBIVOLOL
     Dosage: 1/2 COMPRIMIDOS 1XDIA
     Route: 048
  5. CLOBETASOL [Concomitant]
     Active Substance: CLOBETASOL
     Dosage: 0.05% EM ORABASE EM USO SOS (MEDICAMENTO MANIPULADO)
     Route: 002
  6. PANTOPRAZOL [Concomitant]
     Active Substance: PANTOPRAZOLE SODIUM
     Dosage: PELA MANH?
     Route: 048
  7. TROMALYT [Concomitant]
     Active Substance: ASPIRIN
     Dosage: AO ALMO?O
     Route: 048
  8. SEDOXIL [Concomitant]
     Active Substance: MEXAZOLAM
     Dosage: EM SOS
     Route: 048

REACTIONS (4)
  - Arthralgia [Recovered/Resolved]
  - Dry mouth [Recovered/Resolved]
  - Ear pain [Recovered/Resolved]
  - Headache [Recovered/Resolved]

NARRATIVE: CASE EVENT DATE: 20161010
